FAERS Safety Report 21611723 (Version 1)
Quarter: 2022Q4

REPORT INFORMATION
  Report Type: Spontaneous
  Country: US (occurrence: None)
  Receive Date: 20221117
  Receipt Date: 20221117
  Transmission Date: 20230113
  Serious: Yes (Other)
  Sender: FDA-Public Use
  Company Number: None

PATIENT
  Age: 9 Year
  Sex: Male
  Weight: 57.4 kg

DRUGS (1)
  1. ATOMOXETINE [Suspect]
     Active Substance: ATOMOXETINE
     Indication: Attention deficit hyperactivity disorder
     Dosage: FREQUENCY : DAILY;?
     Route: 048

REACTIONS (5)
  - Product substitution issue [None]
  - Therapeutic response changed [None]
  - Hypersensitivity [None]
  - Drug intolerance [None]
  - Abdominal discomfort [None]

NARRATIVE: CASE EVENT DATE: 20190625
